FAERS Safety Report 17022258 (Version 1)
Quarter: 2019Q4

REPORT INFORMATION
  Report Type: Spontaneous
  Country: FR (occurrence: FR)
  Receive Date: 20191112
  Receipt Date: 20191112
  Transmission Date: 20200122
  Serious: Yes (Hospitalization, Other)
  Sender: FDA-Public Use
  Company Number: FR-ASTRAZENECA-2019SF60669

PATIENT
  Sex: Female

DRUGS (4)
  1. OSIMERTINIB. [Suspect]
     Active Substance: OSIMERTINIB
     Indication: NON-SMALL CELL LUNG CANCER
     Dosage: 40.0MG UNKNOWN
     Route: 048
     Dates: start: 201910, end: 201910
  2. OSIMERTINIB. [Suspect]
     Active Substance: OSIMERTINIB
     Indication: NON-SMALL CELL LUNG CANCER
     Dosage: 80.0MG UNKNOWN
     Route: 048
     Dates: start: 201909, end: 201910
  3. OSIMERTINIB. [Suspect]
     Active Substance: OSIMERTINIB
     Indication: EGFR GENE MUTATION
     Dosage: 80.0MG UNKNOWN
     Route: 048
     Dates: start: 201909, end: 201910
  4. OSIMERTINIB. [Suspect]
     Active Substance: OSIMERTINIB
     Indication: EGFR GENE MUTATION
     Dosage: 40.0MG UNKNOWN
     Route: 048
     Dates: start: 201910, end: 201910

REACTIONS (4)
  - Vomiting [Recovered/Resolved]
  - Malignant neoplasm progression [Unknown]
  - Decreased appetite [Unknown]
  - Nausea [Recovered/Resolved]

NARRATIVE: CASE EVENT DATE: 2019
